FAERS Safety Report 10707984 (Version 2)
Quarter: 2015Q1

REPORT INFORMATION
  Report Type: Spontaneous
  Country: IL (occurrence: IL)
  Receive Date: 20150113
  Receipt Date: 20150123
  Transmission Date: 20150721
  Serious: Yes (Death)
  Sender: FDA-Public Use
  Company Number: IL-JNJFOC-20150107100

PATIENT
  Sex: Female

DRUGS (2)
  1. POMALIDOMIDE [Concomitant]
     Active Substance: POMALIDOMIDE
     Route: 065
  2. IMBRUVICA [Suspect]
     Active Substance: IBRUTINIB
     Indication: PLASMA CELL MYELOMA
     Route: 048

REACTIONS (2)
  - Condition aggravated [Fatal]
  - Death [Fatal]
